FAERS Safety Report 24445146 (Version 2)
Quarter: 2025Q3

REPORT INFORMATION
  Report Type: Spontaneous
  Country: EU (occurrence: EU)
  Receive Date: 20241016
  Receipt Date: 20250802
  Transmission Date: 20251020
  Serious: Yes (Other)
  Sender: ALEXION PHARMACEUTICALS
  Company Number: None

PATIENT
  Age: 77 Year
  Sex: Male
  Weight: 75.3 kg

DRUGS (14)
  1. DAPAGLIFLOZIN [Suspect]
     Active Substance: DAPAGLIFLOZIN
     Indication: Cardiac failure
     Dates: start: 20240904
  2. FUROSEMIDE [Concomitant]
     Active Substance: FUROSEMIDE
  3. JOSAMYCIN [Suspect]
     Active Substance: JOSAMYCIN
     Indication: Pneumonia
     Dates: start: 20240818, end: 20240828
  4. TINZAPARIN SODIUM [Suspect]
     Active Substance: TINZAPARIN SODIUM
     Indication: Atrial fibrillation
     Dates: start: 20240903, end: 20240910
  5. LERCANIDIPINE [Concomitant]
     Active Substance: LERCANIDIPINE
     Indication: Hypertension
  6. ALLOPURINOL [Concomitant]
     Active Substance: ALLOPURINOL
  7. BISOPROLOL [Concomitant]
     Active Substance: BISOPROLOL
  8. PANTOPRAZOLE [Concomitant]
     Active Substance: PANTOPRAZOLE
  9. ELIQUIS [Concomitant]
     Active Substance: APIXABAN
     Dosage: 5 MG *2/JOUR
     Dates: start: 20240910
  10. URAPIDIL [Concomitant]
     Active Substance: URAPIDIL
     Indication: Hypertension
  11. RAMIPRIL [Suspect]
     Active Substance: RAMIPRIL
     Dates: start: 20240904
  12. METFORMIN [Concomitant]
     Active Substance: METFORMIN HYDROCHLORIDE
  13. AUGMENTIN [Suspect]
     Active Substance: AMOXICILLIN\CLAVULANATE POTASSIUM
     Dates: start: 20240828, end: 20240904
  14. ATORVASTATIN [Concomitant]
     Active Substance: ATORVASTATIN

REACTIONS (1)
  - Hepatocellular injury [Recovering/Resolving]

NARRATIVE: CASE EVENT DATE: 20240907
